FAERS Safety Report 8134319-8 (Version None)
Quarter: 2012Q1

REPORT INFORMATION
  Report Type: 
  Country: None (occurrence: None)
  Receive Date: 20120210
  Receipt Date: 20120125
  Transmission Date: 20120608
  Serious: Yes (Death, Hospitalization)
  Sender: FDA-Public Use
  Company Number: 2010BI018379

PATIENT
  Age: 36 Year
  Sex: Female

DRUGS (2)
  1. ZEVALIN [Suspect]
     Indication: DIFFUSE LARGE B-CELL LYMPHOMA RECURRENT
     Dosage: 0.4 MCI/KG, SINGLE, INTRAVENOUS
     Route: 042
     Dates: start: 20051001, end: 20051001
  2. RITUXIMAB (RITUXIMAB) [Suspect]
     Indication: DIFFUSE LARGE B-CELL LYMPHOMA RECURRENT
     Dosage: 250 MG/M2, SINGLE, INTRAVENOUS
     Route: 042
     Dates: start: 20051001, end: 20051001

REACTIONS (4)
  - PULMONARY FIBROSIS [None]
  - MULTI-ORGAN FAILURE [None]
  - ACUTE RESPIRATORY DISTRESS SYNDROME [None]
  - INTERSTITIAL LUNG DISEASE [None]
